FAERS Safety Report 5951424-2 (Version None)
Quarter: 2008Q4

REPORT INFORMATION
  Report Type: 
  Country: None (occurrence: None)
  Receive Date: 20081022
  Receipt Date: 20080807
  Transmission Date: 20090506
  Serious: No
  Sender: FDA-Public Use
  Company Number: ALL1-2008-02235

PATIENT
  Age: 9 Year
  Sex: Female
  Weight: 27.2 kg

DRUGS (2)
  1. VYVANSE [Suspect]
     Indication: ATTENTION DEFICIT/HYPERACTIVITY DISORDER
     Dosage: ORAL
     Route: 048
     Dates: start: 20080101, end: 20080101
  2. VYVANSE [Suspect]
     Indication: CENTRAL AUDITORY PROCESSING DISORDER
     Dosage: ORAL
     Route: 048
     Dates: start: 20080101, end: 20080101

REACTIONS (2)
  - DRUG INEFFECTIVE [None]
  - SCOLIOSIS [None]
